FAERS Safety Report 19724164 (Version 1)
Quarter: 2021Q3

REPORT INFORMATION
  Report Type: Spontaneous
  Country: GB (occurrence: GB)
  Receive Date: 20210819
  Receipt Date: 20210819
  Transmission Date: 20211014
  Serious: Yes (Hospitalization)
  Sender: FDA-Public Use
  Company Number: GB-MYLANLABS-2021M1052777

PATIENT
  Sex: Male

DRUGS (3)
  1. MORPHINE [Concomitant]
     Active Substance: MORPHINE
     Indication: ILL-DEFINED DISORDER
     Dosage: UNK, STABLE ON THAT MORPHINE DOSE PREADMISSION
  2. FENTANYL. [Suspect]
     Active Substance: FENTANYL
     Indication: ILL-DEFINED DISORDER
     Dosage: 100 MICROGRAM, QD
     Route: 062
  3. FENTANYL. [Suspect]
     Active Substance: FENTANYL
     Indication: PAIN

REACTIONS (3)
  - Somnolence [Recovered/Resolved]
  - Constipation [Recovering/Resolving]
  - Product prescribing issue [Unknown]
